FAERS Safety Report 23194688 (Version 4)
Quarter: 2024Q4

REPORT INFORMATION
  Report Type: Spontaneous
  Country: PR (occurrence: PR)
  Receive Date: 20231117
  Receipt Date: 20241107
  Transmission Date: 20250115
  Serious: Yes (Other)
  Sender: JOHNSON AND JOHNSON
  Company Number: PR-JNJFOC-20231128364

PATIENT
  Age: 78 Year
  Sex: Male
  Weight: 73.48 kg

DRUGS (5)
  1. ERLEADA [Suspect]
     Active Substance: APALUTAMIDE
     Indication: Prostate cancer
     Route: 048
  2. ERLEADA [Suspect]
     Active Substance: APALUTAMIDE
     Route: 048
  3. ERLEADA [Suspect]
     Active Substance: APALUTAMIDE
     Route: 048
  4. ERLEADA [Suspect]
     Active Substance: APALUTAMIDE
     Route: 048
  5. PENICILLIN G [Concomitant]
     Active Substance: PENICILLIN G

REACTIONS (8)
  - Oral surgery [Unknown]
  - Groin abscess [Not Recovered/Not Resolved]
  - Implant site pain [Not Recovered/Not Resolved]
  - Stress [Recovering/Resolving]
  - Myalgia [Recovering/Resolving]
  - Mood altered [Not Recovered/Not Resolved]
  - Decreased appetite [Not Recovered/Not Resolved]
  - Fatigue [Unknown]

NARRATIVE: CASE EVENT DATE: 20220101
